FAERS Safety Report 5130617-0 (Version None)
Quarter: 2006Q4

REPORT INFORMATION
  Report Type: 
  Country: None (occurrence: None)
  Receive Date: 20061013
  Receipt Date: 20060925
  Transmission Date: 20070319
  Serious: Yes (Other)
  Sender: FDA-Public Use
  Company Number: US200609007175

PATIENT
  Age: 6 Year
  Sex: Male

DRUGS (5)
  1. STRATTERA [Suspect]
     Indication: ATTENTION DEFICIT/HYPERACTIVITY DISORDER
     Dosage: 0.5 MG/KG; 1.1 MG/KG
     Dates: start: 20060701, end: 20060801
  2. STRATTERA [Suspect]
     Indication: ATTENTION DEFICIT/HYPERACTIVITY DISORDER
     Dosage: 0.5 MG/KG; 1.1 MG/KG
     Dates: start: 20060801, end: 20060914
  3. TEGRETOL [Concomitant]
  4. VALPORAL (VALPROIC ACID) [Concomitant]
  5. CLONIDINE [Concomitant]

REACTIONS (1)
  - CONVULSION [None]
